FAERS Safety Report 4867379-8 (Version None)
Quarter: 2005Q4

REPORT INFORMATION
  Report Type: 
  Country: None (occurrence: None)
  Receive Date: 20051222
  Receipt Date: 20051206
  Transmission Date: 20060501
  Serious: Yes (Hospitalization, Other)
  Sender: FDA-Public Use
  Company Number: USA0510111417

PATIENT
  Age: 28 Year
  Sex: Male

DRUGS (3)
  1. ZYPREXA [Suspect]
     Indication: BIPOLAR DISORDER
     Dosage: 10 MG,
     Dates: start: 20040201, end: 20050301
  2. METFORMIN HCL [Concomitant]
  3. HALDOL [Concomitant]

REACTIONS (6)
  - AGGRESSION [None]
  - BLOOD GLUCOSE FLUCTUATION [None]
  - CONCUSSION [None]
  - DIABETES MELLITUS INADEQUATE CONTROL [None]
  - HEAD INJURY [None]
  - LOSS OF CONSCIOUSNESS [None]
